FAERS Safety Report 7377959-6 (Version None)
Quarter: 2011Q1

REPORT INFORMATION
  Report Type: 
  Country: None (occurrence: None)
  Receive Date: 20110328
  Receipt Date: 20110318
  Transmission Date: 20110831
  Serious: Yes (Other)
  Sender: FDA-Public Use
  Company Number: FR-MPIJNJ-2011-00757

PATIENT

DRUGS (9)
  1. ZELITREX                           /01269701/ [Concomitant]
     Dosage: 500 MG, UNK
     Route: 048
  2. VELCADE [Suspect]
     Indication: MULTIPLE MYELOMA
     Dosage: UNK
     Route: 042
     Dates: start: 20100806
  3. MELPHALAN [Concomitant]
     Indication: MULTIPLE MYELOMA
  4. ACETAMINOPHEN AND TRAMADOL HCL [Concomitant]
  5. LYRICA [Concomitant]
     Dosage: 150 MG, UNK
     Route: 048
  6. DEXAMETHASONE [Concomitant]
     Indication: MULTIPLE MYELOMA
  7. PREDNISONE [Concomitant]
  8. ATARAX [Concomitant]
     Dosage: 25 MG, UNK
     Route: 048
  9. BACTRIM [Concomitant]
     Dosage: UNK
     Dates: start: 20101201, end: 20110101

REACTIONS (1)
  - PULMONARY FIBROSIS [None]
